FAERS Safety Report 10456600 (Version 1)
Quarter: 2014Q3

REPORT INFORMATION
  Report Type: Spontaneous
  Country: JP (occurrence: JP)
  Receive Date: 20140916
  Receipt Date: 20140916
  Transmission Date: 20150326
  Serious: No
  Sender: FDA-Public Use
  Company Number: PHHY2011JP121661

PATIENT
  Sex: Male

DRUGS (3)
  1. GLIVEC [Suspect]
     Active Substance: IMATINIB MESYLATE
     Dosage: 600 MG
     Dates: start: 20111011, end: 20121011
  2. WARFARIN K [Concomitant]
     Active Substance: WARFARIN POTASSIUM
  3. TASIGNA [Suspect]
     Active Substance: NILOTINIB
     Indication: CHRONIC MYELOID LEUKAEMIA
     Dosage: 600 MG DAILY
     Dates: start: 20121011

REACTIONS (3)
  - Nausea [Unknown]
  - Diarrhoea [Unknown]
  - Myalgia [Unknown]
